FAERS Safety Report 24957451 (Version 1)
Quarter: 2025Q1

REPORT INFORMATION
  Report Type: Report from Study
  Country: UY (occurrence: UY)
  Receive Date: 20250212
  Receipt Date: 20250212
  Transmission Date: 20250408
  Serious: Yes (Hospitalization)
  Sender: ABBVIE
  Company Number: UY-ABBVIE-6122655

PATIENT
  Age: 70 Year
  Sex: Female

DRUGS (1)
  1. RINVOQ [Suspect]
     Active Substance: UPADACITINIB
     Indication: Rheumatoid arthritis
     Dosage: RINVOQ 15MG X 30 TABLETS
     Route: 048
     Dates: start: 20230123

REACTIONS (8)
  - Cellulitis [Recovered/Resolved]
  - Animal bite [Recovered/Resolved]
  - Swelling [Recovered/Resolved]
  - Nausea [Not Recovered/Not Resolved]
  - Discomfort [Not Recovered/Not Resolved]
  - Sacral pain [Not Recovered/Not Resolved]
  - Pain [Not Recovered/Not Resolved]
  - Joint abscess [Unknown]
